FAERS Safety Report 8206037-9 (Version None)
Quarter: 2012Q1

REPORT INFORMATION
  Report Type: 
  Country: None (occurrence: None)
  Receive Date: 20120313
  Receipt Date: 20120227
  Transmission Date: 20120608
  Serious: Yes (Death)
  Sender: FDA-Public Use
  Company Number: GB-WATSON-2012-04003

PATIENT
  Age: 41 Year
  Sex: Male

DRUGS (5)
  1. AZATHIOPRINE [Suspect]
     Dosage: X 5-6 YEARS
     Route: 065
     Dates: end: 20020101
  2. METHOTREXATE [Suspect]
  3. INFLIXIMAB [Suspect]
  4. AZATHIOPRINE [Suspect]
     Indication: CROHN'S DISEASE
     Dosage: 2.5 MG/KG, UNK
     Route: 065
     Dates: start: 20050101, end: 20050101
  5. PREDNISOLONE [Suspect]
     Indication: CROHN'S DISEASE
     Dosage: X 15 YEARS
     Route: 065

REACTIONS (1)
  - LEIOMYOSARCOMA METASTATIC [None]
